FAERS Safety Report 4730049-0 (Version None)
Quarter: 2005Q3

REPORT INFORMATION
  Report Type: 
  Country: None (occurrence: None)
  Receive Date: 20050801
  Receipt Date: 20050720
  Transmission Date: 20060218
  Serious: Yes (Other)
  Sender: FDA-Public Use
  Company Number: CA-JNJFOC-20050704360

PATIENT
  Sex: Female

DRUGS (4)
  1. REMICADE [Suspect]
     Indication: CROHN'S DISEASE
     Dates: start: 20050128, end: 20050201
  2. PENTACEL [Concomitant]
  3. AMITRIPTYLINE HCL [Concomitant]
  4. LOSEC [Concomitant]

REACTIONS (1)
  - LUPUS-LIKE SYNDROME [None]
